FAERS Safety Report 14638812 (Version 2)
Quarter: 2018Q2

REPORT INFORMATION
  Report Type: Spontaneous
  Country: US (occurrence: US)
  Receive Date: 20180315
  Receipt Date: 20180518
  Transmission Date: 20180711
  Serious: Yes (Other)
  Sender: FDA-Public Use
  Company Number: US-AMGEN-USASP2018031941

PATIENT
  Age: 75 Year
  Sex: Female

DRUGS (3)
  1. PROLIA [Suspect]
     Active Substance: DENOSUMAB
     Indication: OSTEOPOROSIS POSTMENOPAUSAL
     Dosage: 60 MG, Q6MO
     Route: 065
     Dates: start: 2015
  2. CALCIUM [Concomitant]
     Active Substance: CALCIUM
  3. VITAMIN D3 [Concomitant]
     Active Substance: CHOLECALCIFEROL

REACTIONS (12)
  - Hypoaesthesia [Recovering/Resolving]
  - Pain in extremity [Unknown]
  - Blood cholesterol increased [Unknown]
  - Arthritis [Unknown]
  - Carpal tunnel decompression [Unknown]
  - Arthralgia [Unknown]
  - Pain [Recovering/Resolving]
  - Drug hypersensitivity [Unknown]
  - Paraesthesia [Recovering/Resolving]
  - Skin disorder [Not Recovered/Not Resolved]
  - Back pain [Unknown]
  - Muscle spasms [Unknown]
